FAERS Safety Report 7190487-6 (Version None)
Quarter: 2010Q4

REPORT INFORMATION
  Report Type: 
  Country: None (occurrence: None)
  Receive Date: 20101223
  Receipt Date: 20101214
  Transmission Date: 20110411
  Serious: Yes (Hospitalization)
  Sender: FDA-Public Use
  Company Number: JP-JNJFOC-20101206078

PATIENT
  Age: 41 Year
  Sex: Male
  Weight: 55 kg

DRUGS (10)
  1. REMICADE [Suspect]
     Indication: PSORIATIC ARTHROPATHY
     Route: 042
  2. REMICADE [Suspect]
     Route: 042
  3. REMICADE [Suspect]
     Route: 042
  4. REMICADE [Suspect]
     Route: 042
  5. ANTEBATE [Concomitant]
     Indication: PSORIATIC ARTHROPATHY
     Dosage: START DATE BEFORE INFLIXIMAB THERAPY
  6. TALION [Concomitant]
     Indication: PROPHYLAXIS
     Route: 048
  7. CALONAL [Concomitant]
     Indication: PROPHYLAXIS
     Route: 048
  8. LOXONIN [Concomitant]
     Indication: PROPHYLAXIS
     Route: 048
  9. DOVONEX [Concomitant]
     Indication: PSORIATIC ARTHROPATHY
  10. OXAROL [Concomitant]
     Indication: PSORIATIC ARTHROPATHY

REACTIONS (3)
  - ARTHRALGIA [None]
  - HYPOAESTHESIA [None]
  - PSORIASIS [None]
